FAERS Safety Report 20085972 (Version 1)
Quarter: 2021Q4

REPORT INFORMATION
  Report Type: Spontaneous
  Country: TN (occurrence: TN)
  Receive Date: 20211118
  Receipt Date: 20211118
  Transmission Date: 20220303
  Serious: Yes (Death, Hospitalization, Other)
  Sender: FDA-Public Use
  Company Number: TN-SA-SAC20210825000612

PATIENT
  Age: 21 Month
  Sex: Female
  Weight: 8.2 kg

DRUGS (6)
  1. CEREZYME [Suspect]
     Active Substance: IMIGLUCERASE
     Indication: Gaucher^s disease type III
     Dosage: 60 IU/KG, QOW
     Route: 042
     Dates: start: 20200218
  2. CEFIXIME [Concomitant]
     Active Substance: CEFIXIME
  3. FUROSEMIDE [Concomitant]
     Active Substance: FUROSEMIDE
  4. PREDNISOLONE [Concomitant]
     Active Substance: PREDNISOLONE
  5. PROPRANOLOL [Concomitant]
     Active Substance: PROPRANOLOL HYDROCHLORIDE
  6. ALDACTONE [Concomitant]
     Active Substance: SPIRONOLACTONE
     Dosage: ALDACTONE, DOSE, SCHEDULE OR TOTAL DAILY DOSE (UNITS): 5MG/KG/DAY (35 MG/DAY), START DATE: 09 JUL 20
     Dates: start: 20200709

REACTIONS (8)
  - Hepatic cirrhosis [Fatal]
  - Hepatocellular injury [Fatal]
  - Multiple organ dysfunction syndrome [Fatal]
  - Disseminated intravascular coagulation [Fatal]
  - Haematemesis [Unknown]
  - Abdominal distension [Unknown]
  - Therapy interrupted [Unknown]
  - General physical health deterioration [Unknown]

NARRATIVE: CASE EVENT DATE: 20200330
